FAERS Safety Report 7051020-2 (Version None)
Quarter: 2010Q4

REPORT INFORMATION
  Report Type: 
  Country: None (occurrence: None)
  Receive Date: 20101018
  Receipt Date: 20101018
  Transmission Date: 20110411
  Serious: Yes (Other)
  Sender: FDA-Public Use
  Company Number: None

PATIENT
  Age: 54 Year
  Sex: Male
  Weight: 76 kg

DRUGS (4)
  1. PEMETREXED [Suspect]
     Indication: LUNG ADENOCARCINOMA
     Dosage: 1025 MG ONCE PER CYCLE FOR 4 CYCLES IV
     Route: 042
     Dates: start: 20090903
  2. PEMETREXED [Suspect]
     Indication: LUNG ADENOCARCINOMA
     Dosage: 1025 MG ONCE PER CYCLE FOR 4 CYCLES IV
     Route: 042
     Dates: start: 20090924
  3. PEMETREXED [Suspect]
     Indication: LUNG ADENOCARCINOMA
     Dosage: 1025 MG ONCE PER CYCLE FOR 4 CYCLES IV
     Route: 042
     Dates: start: 20091015
  4. PEMETREXED [Suspect]
     Indication: LUNG ADENOCARCINOMA
     Dosage: 1025 MG ONCE PER CYCLE FOR 4 CYCLES IV
     Route: 042
     Dates: start: 20091106

REACTIONS (4)
  - ABDOMINAL PAIN UPPER [None]
  - GASTROINTESTINAL DISORDER [None]
  - NAUSEA [None]
  - VOMITING [None]
